FAERS Safety Report 25971427 (Version 1)
Quarter: 2025Q4

REPORT INFORMATION
  Report Type: Report from Study
  Country: US (occurrence: US)
  Receive Date: 20251028
  Receipt Date: 20251028
  Transmission Date: 20260118
  Serious: Yes (Hospitalization)
  Sender: ABBVIE
  Company Number: US-ABBVIE-6398123

PATIENT
  Sex: Female

DRUGS (1)
  1. IMBRUVICA [Suspect]
     Active Substance: IBRUTINIB
     Indication: Product used for unknown indication
     Route: 048

REACTIONS (5)
  - Internal haemorrhage [Recovering/Resolving]
  - Dizziness [Recovering/Resolving]
  - Heart rate increased [Unknown]
  - Fatigue [Recovering/Resolving]
  - Drug interaction [Recovering/Resolving]
